FAERS Safety Report 9626879 (Version 1)
Quarter: 2013Q4

REPORT INFORMATION
  Report Type: Spontaneous
  Country: GB (occurrence: GB)
  Receive Date: 20131016
  Receipt Date: 20131016
  Transmission Date: 20140711
  Serious: Yes (Hospitalization, Other)
  Sender: FDA-Public Use
  Company Number: PHHY2013GB112007

PATIENT
  Age: 73 Year
  Sex: Female

DRUGS (6)
  1. TRAMADOL [Suspect]
     Route: 048
     Dates: start: 2013
  2. TRIMETHOPRIM [Concomitant]
     Dosage: 200 MG, BID
     Dates: start: 20130211
  3. PHENYTOIN [Concomitant]
     Dosage: 100 MG, TID
  4. OMEPRAZOLE [Concomitant]
     Dosage: 20 MG, QD
  5. FERROUS GLUCONATE [Concomitant]
     Dosage: 300 MG, BID
  6. ESTRADERM [Concomitant]
     Dosage: 25 UG, QW2
     Route: 062

REACTIONS (4)
  - Grand mal convulsion [Recovered/Resolved]
  - Postictal state [Recovered/Resolved]
  - Epilepsy [Unknown]
  - Convulsion [Recovered/Resolved]
